FAERS Safety Report 7539654-X (Version None)
Quarter: 2011Q2

REPORT INFORMATION
  Report Type: 
  Country: None (occurrence: None)
  Receive Date: 20110609
  Receipt Date: 20110609
  Transmission Date: 20111010
  Serious: Yes (Hospitalization)
  Sender: FDA-Public Use
  Company Number: None

PATIENT
  Age: 84 Year
  Sex: Female
  Weight: 77.1115 kg

DRUGS (1)
  1. CYMBALTA [Suspect]
     Indication: ARTHRALGIA
     Dosage: ONE CAPSULE BY MOUTH DAILEY
     Route: 048
     Dates: start: 20110426, end: 20110516

REACTIONS (4)
  - FALL [None]
  - HYPOAESTHESIA [None]
  - LOWER LIMB FRACTURE [None]
  - ANKLE FRACTURE [None]
